FAERS Safety Report 4542237-7 (Version None)
Quarter: 2004Q4

REPORT INFORMATION
  Report Type: 
  Country: None (occurrence: None)
  Receive Date: 20041227
  Receipt Date: 20041216
  Transmission Date: 20050328
  Serious: Yes (Other)
  Sender: FDA-Public Use
  Company Number: HQWYE107020DEC04

PATIENT
  Age: 58 Year
  Sex: Female

DRUGS (2)
  1. DRISTAN [Suspect]
     Dosage: 2 TABS ONCE, ORAL
     Route: 048
     Dates: start: 19980101, end: 19980101
  2. UNSPECIFIED HORMONE REPLACEMENT THERAPY AGENT (UNSPECIFIED HORMONE REP [Concomitant]

REACTIONS (2)
  - HAEMORRHAGIC STROKE [None]
  - INFLUENZA [None]
